FAERS Safety Report 15819747 (Version 2)
Quarter: 2019Q1

REPORT INFORMATION
  Report Type: Spontaneous
  Country: CN (occurrence: CN)
  Receive Date: 20190114
  Receipt Date: 20190201
  Transmission Date: 20190417
  Serious: Yes (Death, Other)
  Sender: FDA-Public Use
  Company Number: CN-ROCHE-2239685

PATIENT
  Age: 48 Year
  Sex: Female
  Weight: 64 kg

DRUGS (20)
  1. CIS-PLATINUM [Concomitant]
     Active Substance: CISPLATIN
     Indication: BREAST CANCER METASTATIC
     Route: 042
     Dates: start: 20151201
  2. VINORELBINE [Concomitant]
     Active Substance: VINORELBINE\VINORELBINE TARTRATE
     Route: 042
     Dates: start: 20160531
  3. CARBOPLATIN. [Concomitant]
     Active Substance: CARBOPLATIN
     Route: 042
     Dates: start: 20160214
  4. LOBAPLATIN [Concomitant]
     Active Substance: LOBAPLATIN
     Route: 042
     Dates: start: 20160509
  5. VINORELBINE [Concomitant]
     Active Substance: VINORELBINE\VINORELBINE TARTRATE
     Indication: BREAST CANCER METASTATIC
     Route: 042
     Dates: start: 20151201
  6. CARBOPLATIN. [Concomitant]
     Active Substance: CARBOPLATIN
     Indication: BREAST CANCER METASTATIC
     Route: 042
     Dates: start: 20151201
  7. HERCEPTIN [Suspect]
     Active Substance: TRASTUZUMAB
     Indication: BREAST CANCER METASTATIC
     Route: 042
     Dates: start: 20150909
  8. VINORELBINE [Concomitant]
     Active Substance: VINORELBINE\VINORELBINE TARTRATE
     Route: 042
     Dates: start: 20160109
  9. CARBOPLATIN. [Concomitant]
     Active Substance: CARBOPLATIN
     Route: 042
     Dates: start: 20160109
  10. NORMAL SALINE [Concomitant]
     Active Substance: SODIUM CHLORIDE
     Indication: BREAST CANCER METASTATIC
     Route: 065
     Dates: start: 20150909
  11. VINORELBINE [Concomitant]
     Active Substance: VINORELBINE\VINORELBINE TARTRATE
     Route: 042
     Dates: start: 20160214
  12. VINORELBINE [Concomitant]
     Active Substance: VINORELBINE\VINORELBINE TARTRATE
     Route: 042
     Dates: start: 20160509
  13. CIS-PLATINUM [Concomitant]
     Active Substance: CISPLATIN
     Route: 042
     Dates: start: 20160109
  14. LOBAPLATIN [Concomitant]
     Active Substance: LOBAPLATIN
     Route: 042
     Dates: start: 20160531
  15. HERCEPTIN [Suspect]
     Active Substance: TRASTUZUMAB
     Indication: BREAST CANCER METASTATIC
     Route: 065
     Dates: start: 20161007, end: 20170213
  16. CIS-PLATINUM [Concomitant]
     Active Substance: CISPLATIN
     Route: 042
     Dates: start: 20160214
  17. VINORELBINE [Concomitant]
     Active Substance: VINORELBINE\VINORELBINE TARTRATE
     Route: 042
     Dates: start: 20160313
  18. VINORELBINE [Concomitant]
     Active Substance: VINORELBINE\VINORELBINE TARTRATE
     Route: 042
     Dates: start: 20160411
  19. LOBAPLATIN [Concomitant]
     Active Substance: LOBAPLATIN
     Indication: BREAST CANCER METASTATIC
     Route: 042
     Dates: start: 20160313
  20. LOBAPLATIN [Concomitant]
     Active Substance: LOBAPLATIN
     Route: 042
     Dates: start: 20160411

REACTIONS (9)
  - Death [Fatal]
  - Heart rate increased [Unknown]
  - Cyanosis [Unknown]
  - Pyrexia [Unknown]
  - Dyspnoea [Unknown]
  - Chest discomfort [Unknown]
  - Headache [Unknown]
  - Vomiting [Unknown]
  - Oxygen saturation decreased [Unknown]

NARRATIVE: CASE EVENT DATE: 20150909
